FAERS Safety Report 17195754 (Version 3)
Quarter: 2020Q1

REPORT INFORMATION
  Report Type: Spontaneous
  Country: US (occurrence: US)
  Receive Date: 20191224
  Receipt Date: 20200212
  Transmission Date: 20200409
  Serious: Yes (Other)
  Sender: FDA-Public Use
  Company Number: US-BAYER-2019-234602

PATIENT
  Age: 72 Year
  Sex: Female
  Weight: 87.98 kg

DRUGS (7)
  1. PROTONIX [OMEPRAZOLE] [Concomitant]
     Active Substance: OMEPRAZOLE
     Indication: CHRONIC GASTRITIS
     Dosage: 40 MG, QD
  2. LORATADINE. [Suspect]
     Active Substance: LORATADINE
  3. SINGULAIR [Suspect]
     Active Substance: MONTELUKAST SODIUM
     Route: 048
  4. ELIQUIS [Suspect]
     Active Substance: APIXABAN
  5. SYNTHROID [Suspect]
     Active Substance: LEVOTHYROXINE SODIUM
  6. LYRICA [Suspect]
     Active Substance: PREGABALIN
     Indication: DIABETIC NEUROPATHY
     Dosage: 75 MG, BID
     Route: 048
  7. SYMBICORT [Suspect]
     Active Substance: BUDESONIDE\FORMOTEROL FUMARATE DIHYDRATE

REACTIONS (8)
  - Diabetic neuropathy [Unknown]
  - Atrioventricular block [Unknown]
  - Asthma [Unknown]
  - Gastric disorder [Unknown]
  - Single functional kidney [Unknown]
  - Diabetes mellitus [Unknown]
  - Dyspnoea [Unknown]
  - Hypertension [Unknown]
